FAERS Safety Report 24606348 (Version 3)
Quarter: 2025Q2

REPORT INFORMATION
  Report Type: Report from Study
  Country: GB (occurrence: GB)
  Receive Date: 20241112
  Receipt Date: 20250404
  Transmission Date: 20250716
  Serious: Yes (Disabling, Other)
  Sender: CELLTRION
  Company Number: GB-CELLTRION INC.-2024GB027956

PATIENT

DRUGS (3)
  1. ADALIMUMAB-AATY [Suspect]
     Active Substance: ADALIMUMAB-AATY
     Indication: Psoriatic arthropathy
     Route: 058
     Dates: start: 202409
  2. ADALIMUMAB-AATY [Suspect]
     Active Substance: ADALIMUMAB-AATY
     Route: 058
     Dates: start: 202409
  3. ADALIMUMAB-AATY [Suspect]
     Active Substance: ADALIMUMAB-AATY
     Route: 058

REACTIONS (7)
  - Gait inability [Unknown]
  - Anxiety [Unknown]
  - Lower respiratory tract infection [Unknown]
  - Restless legs syndrome [Unknown]
  - Depression [Unknown]
  - Urinary tract infection [Unknown]
  - Palpitations [Unknown]
